APPROVED DRUG PRODUCT: MENEST
Active Ingredient: ESTROGENS, ESTERIFIED
Strength: 0.625MG
Dosage Form/Route: TABLET;ORAL
Application: A084948 | Product #001
Applicant: MONARCH PHARMACEUTICALS LLC
Approved: Approved Prior to Jan 1, 1982 | RLD: No | RS: No | Type: DISCN